FAERS Safety Report 5286586-6 (Version None)
Quarter: 2007Q1

REPORT INFORMATION
  Report Type: 
  Country: None (occurrence: None)
  Receive Date: 20070116
  Receipt Date: 20061120
  Transmission Date: 20070707
  Serious: No
  Sender: FDA-Public Use
  Company Number: 2006SP004117

PATIENT
  Age: 79 Year
  Sex: Female
  Weight: 81.6475 kg

DRUGS (20)
  1. LUNESTA [Suspect]
     Indication: INSOMNIA
     Dosage: SEE IMAGE
     Route: 048
     Dates: start: 20060101, end: 20060101
  2. LUNESTA [Suspect]
     Indication: INSOMNIA
     Dosage: SEE IMAGE
     Route: 048
     Dates: start: 20061011, end: 20060101
  3. PANTOPRAZOLE [Concomitant]
  4. LEVOTHYROXINE SODIUM [Concomitant]
  5. GLYBURIDE [Concomitant]
  6. ZETIA [Concomitant]
  7. CRESTOR [Concomitant]
  8. LORAZEPAM [Concomitant]
  9. NEURONTIN [Concomitant]
  10. POTASSIUM CHLORIDE [Concomitant]
  11. LEXAPRO [Concomitant]
  12. ESTROGENS CONJUGATED [Concomitant]
  13. TRAMADOL HCL [Concomitant]
  14. DETROL [Concomitant]
  15. FUROSEMIDE [Concomitant]
  16. RESERPINE [Concomitant]
  17. CHOLESTYRAMINE [Concomitant]
  18. FLONASE [Concomitant]
  19. ADVAIR DISKUS 100/50 [Concomitant]
  20. ARICEPT [Concomitant]

REACTIONS (1)
  - DYSGEUSIA [None]
